FAERS Safety Report 4976220-4 (Version None)
Quarter: 2006Q2

REPORT INFORMATION
  Report Type: 
  Country: None (occurrence: None)
  Receive Date: 20060419
  Receipt Date: 20060406
  Transmission Date: 20061013
  Serious: Yes (Other)
  Sender: FDA-Public Use
  Company Number: PHBS2006US05375

PATIENT
  Age: 72 Year
  Sex: Male

DRUGS (11)
  1. ZOLEDRONATE [Suspect]
     Indication: METASTASES TO BONE
     Dosage: UNK, QMO
  2. OMEPRAZOLE [Concomitant]
  3. DUTASTERIDE [Concomitant]
  4. CELECOXIB [Concomitant]
  5. GLIMEPIRIDE [Concomitant]
  6. ASPIRIN [Concomitant]
  7. LYCOPENE [Concomitant]
  8. SILIBININ [Concomitant]
  9. CALCITRIOL [Concomitant]
  10. COENZYME Q10 [Concomitant]
  11. MELATONIN [Concomitant]

REACTIONS (8)
  - BONE DISORDER [None]
  - GINGIVAL RECESSION [None]
  - GINGIVAL ULCERATION [None]
  - ORAL DISCOMFORT [None]
  - OSTEONECROSIS [None]
  - PARAESTHESIA ORAL [None]
  - THERAPY NON-RESPONDER [None]
  - TOOTH LOSS [None]
